FAERS Safety Report 7883705-X (Version None)
Quarter: 2011Q4

REPORT INFORMATION
  Report Type: 
  Country: None (occurrence: None)
  Receive Date: 20111031
  Receipt Date: 20111016
  Transmission Date: 20120403
  Serious: Yes (Death, Congenital Anomaly)
  Sender: FDA-Public Use
  Company Number: PL-006623

PATIENT
  Sex: Female

DRUGS (8)
  1. LYNESTRENOL (LINESTRENOL) [Suspect]
     Indication: IN VITRO FERTILISATION
  2. NADROPARIN (NADROPARINE) [Suspect]
     Indication: PRODUCT USED FOR UNKNOWN INDICATION
  3. CHORIONIC GONADOTROPIN [Suspect]
     Indication: IN VITRO FERTILISATION
  4. ESTRADIOL [Suspect]
     Indication: IN VITRO FERTILISATION
  5. ASPIRIN [Suspect]
     Indication: PRODUCT USED FOR UNKNOWN INDICATION
  6. TRIPTORELIN (TRIPTORELIN) [Suspect]
     Indication: IN VITRO FERTILISATION
  7. FOLLITROPIN ALFA (FOLLITROPIN RECOMBINANT) [Suspect]
     Indication: IN VITRO FERTILISATION
  8. MENOTROPINS [Suspect]
     Indication: IN VITRO FERTILISATION

REACTIONS (12)
  - NEONATAL RESPIRATORY FAILURE [None]
  - CEPHALO-PELVIC DISPROPORTION [None]
  - TUMOUR NECROSIS [None]
  - CAESAREAN SECTION [None]
  - FEEDING DISORDER NEONATAL [None]
  - HEPATOBLASTOMA [None]
  - FOETAL EXPOSURE DURING PREGNANCY [None]
  - ABDOMINAL DISTENSION [None]
  - DEATH NEONATAL [None]
  - CIRCULATORY FAILURE NEONATAL [None]
  - CRANIOPHARYNGIOMA [None]
  - CONGENITAL HYDROCEPHALUS [None]
